FAERS Safety Report 25674017 (Version 1)
Quarter: 2025Q3

REPORT INFORMATION
  Report Type: Spontaneous
  Country: AU (occurrence: AU)
  Receive Date: 20250813
  Receipt Date: 20250813
  Transmission Date: 20251021
  Serious: Yes (Hospitalization, Other)
  Sender: ALEXION PHARMACEUTICALS
  Company Number: AU-ASTRAZENECA-202508OCE002886AU

PATIENT
  Age: 63 Year
  Sex: Male
  Weight: 99.7 kg

DRUGS (5)
  1. OSIMERTINIB [Suspect]
     Active Substance: OSIMERTINIB
     Indication: Non-small cell lung cancer
     Dosage: 80 MILLIGRAM, QD
     Dates: start: 20240422
  2. MAGNESIUM [Concomitant]
     Active Substance: MAGNESIUM
  3. KRILL OIL [Concomitant]
     Active Substance: DIETARY SUPPLEMENT\KRILL OIL
  4. MELATONIN [Concomitant]
     Active Substance: MELATONIN
     Indication: Insomnia
  5. ASPIRIN [Concomitant]
     Active Substance: ASPIRIN
     Indication: Angina pectoris
     Dosage: 100 MILLIGRAM, QD

REACTIONS (1)
  - Myopericarditis [Recovered/Resolved]

NARRATIVE: CASE EVENT DATE: 20240424
